FAERS Safety Report 16909368 (Version 1)
Quarter: 2019Q4

REPORT INFORMATION
  Report Type: Spontaneous
  Country: US (occurrence: US)
  Receive Date: 20190820
  Receipt Date: 20190820
  Transmission Date: 20200122
  Serious: Yes (Disabling, Other)
  Sender: FDA-Public Use
  Company Number: None

PATIENT
  Age: 66 Year
  Sex: Female
  Weight: 92.53 kg

DRUGS (1)
  1. ENBREL [Suspect]
     Active Substance: ETANERCEPT
     Indication: RHEUMATOID ARTHRITIS
     Dosage: ?          QUANTITY:1 DF DOSAGE FORM;?
     Dates: start: 2019

REACTIONS (4)
  - Injection site vesicles [None]
  - Injection site induration [None]
  - Pruritus [None]
  - Injection site erythema [None]

NARRATIVE: CASE EVENT DATE: 20190613
